FAERS Safety Report 9099508 (Version 1)
Quarter: 2013Q1

REPORT INFORMATION
  Report Type: Spontaneous
  Country: US (occurrence: US)
  Receive Date: 20130214
  Receipt Date: 20130214
  Transmission Date: 20140127
  Serious: Yes (Other)
  Sender: FDA-Public Use
  Company Number: US-TEVA-386137USA

PATIENT
  Sex: 0

DRUGS (4)
  1. FOLINIC ACID [Suspect]
  2. ZIV-AFLIBERCEPT (ZALTRAP) [Suspect]
  3. FLUOROURACIL [Suspect]
  4. IRINOTECAN [Suspect]

REACTIONS (1)
  - Neutropenia [Unknown]
